FAERS Safety Report 7965780-7 (Version None)
Quarter: 2011Q4

REPORT INFORMATION
  Report Type: 
  Country: None (occurrence: None)
  Receive Date: 20111208
  Receipt Date: 20111124
  Transmission Date: 20120403
  Serious: Yes (Hospitalization)
  Sender: FDA-Public Use
  Company Number: NL-CELGENEUS-114-AB007-11060051

PATIENT
  Sex: Male
  Weight: 65 kg

DRUGS (16)
  1. OMEPRAZOLE [Concomitant]
     Dosage: 80 MILLIGRAM
     Route: 048
     Dates: start: 20110201, end: 20110529
  2. METFORMIN HCL [Concomitant]
     Dosage: 3000 MILLIGRAM
     Dates: start: 20110529, end: 20110530
  3. FERROFUMARAAT [Concomitant]
     Dosage: 400 MILLIGRAM
     Route: 048
     Dates: start: 20110201
  4. FERROFUMARAAT [Concomitant]
     Dosage: 400 MILLIGRAM
     Route: 048
     Dates: start: 20110529, end: 20110601
  5. LOPERAMIDE HCL [Concomitant]
     Dosage: 16 MILLIGRAM
     Route: 048
     Dates: start: 20110607
  6. DICLOFENAC [Concomitant]
     Dosage: 100 MILLIGRAM
     Route: 048
     Dates: start: 20110531, end: 20110601
  7. LOPERAMIDE HCL [Concomitant]
     Dosage: 8 MILLIGRAM
     Route: 048
     Dates: start: 20110531, end: 20110601
  8. LOPERAMIDE HCL [Concomitant]
     Route: 048
     Dates: start: 20110618
  9. CALCIUM GLUBIONATE [Concomitant]
     Dosage: 20 MILLILITER
     Route: 041
     Dates: start: 20110529, end: 20110530
  10. LOPERAMIDE HCL [Concomitant]
     Route: 048
     Dates: start: 20110531, end: 20110607
  11. CALCIUM GLUBIONATE [Concomitant]
     Dosage: 30 MILLILITER
     Route: 041
     Dates: start: 20110531, end: 20110601
  12. INSULIN FLEXPEN [Concomitant]
     Dosage: N/A
     Route: 058
     Dates: start: 20110619
  13. ABRAXANE [Suspect]
     Dosage: 150 MILLIGRAM/SQ. METER
     Route: 050
     Dates: start: 20110524, end: 20110621
  14. HYDROCHLOROTHIAZIDE [Suspect]
     Indication: HYPERTENSION
     Dosage: 25 MILLIGRAM
     Route: 048
     Dates: start: 20060101, end: 20110529
  15. METFORMIN HCL [Concomitant]
     Dosage: 1000 MILLIGRAM
     Route: 048
     Dates: start: 20050101
  16. PHOSPHATE [Concomitant]
     Dosage: 90 MILLILITER
     Route: 050
     Dates: start: 20110620

REACTIONS (3)
  - HYPOKALAEMIA [None]
  - HYPOCALCAEMIA [None]
  - HYPOMAGNESAEMIA [None]
